FAERS Safety Report 4370183-0 (Version None)
Quarter: 2004Q2

REPORT INFORMATION
  Report Type: 
  Country: None (occurrence: None)
  Receive Date: 20040603
  Receipt Date: 20040409
  Transmission Date: 20050107
  Serious: Yes (Other)
  Sender: FDA-Public Use
  Company Number: US-BRISTOL-MYERS SQUIBB COMPANY-12556395

PATIENT
  Age: 17 Year
  Sex: Male
  Weight: 66 kg

DRUGS (3)
  1. ABILIFY [Suspect]
     Indication: ANGER
     Dosage: 11/03, 10 MG W/ INCR TO 15 OR 20 MG; INTERRUPTED 2/04; RESTART 3/04; D/C
     Route: 048
     Dates: start: 20031101
  2. PROZAC [Concomitant]
     Indication: DEPRESSION
     Dates: start: 20031101
  3. ALBUTEROL [Concomitant]

REACTIONS (8)
  - AFFECT LABILITY [None]
  - CHEST PAIN [None]
  - DELUSION [None]
  - DISCOMFORT [None]
  - FEELING ABNORMAL [None]
  - HOSTILITY [None]
  - MEMORY IMPAIRMENT [None]
  - TREATMENT NONCOMPLIANCE [None]
